FAERS Safety Report 23390729 (Version 1)
Quarter: 2024Q1

REPORT INFORMATION
  Report Type: Spontaneous
  Country: US (occurrence: US)
  Receive Date: 20240111
  Receipt Date: 20240111
  Transmission Date: 20240410
  Serious: Yes (Other)
  Sender: FDA-Public Use
  Company Number: US-DRL-USA-LIT/USA/23/0032275

PATIENT
  Age: 40 Year
  Sex: Female

DRUGS (5)
  1. COLCHICINE [Suspect]
     Active Substance: COLCHICINE
     Indication: Pericarditis
  2. ASPIRIN [Suspect]
     Active Substance: ASPIRIN
     Indication: Pericarditis
  3. PREDNISONE [Suspect]
     Active Substance: PREDNISONE
     Indication: Pericarditis
  4. DEXAMETHASONE [Concomitant]
     Active Substance: DEXAMETHASONE
  5. ANAKINRA [Concomitant]
     Active Substance: ANAKINRA
     Indication: Chest pain

REACTIONS (5)
  - Drug ineffective for unapproved indication [Unknown]
  - Respiratory failure [Unknown]
  - Pulmonary oedema [Unknown]
  - Pericardial effusion [Unknown]
  - Pleural effusion [Unknown]
